FAERS Safety Report 6129623-9 (Version None)
Quarter: 2009Q1

REPORT INFORMATION
  Report Type: 
  Country: None (occurrence: None)
  Receive Date: 20090323
  Receipt Date: 20090323
  Transmission Date: 20090719
  Serious: Yes (Other)
  Sender: FDA-Public Use
  Company Number: None

PATIENT
  Age: 26 Year
  Sex: Female
  Weight: 62.5964 kg

DRUGS (1)
  1. SUMATRIPTAN SUCCINATE [Suspect]
     Indication: MIGRAINE
     Dosage: 1 50MG DOSE PO
     Route: 048
     Dates: start: 20090316, end: 20090316

REACTIONS (12)
  - DYSPHAGIA [None]
  - EAR PAIN [None]
  - ERYTHEMA [None]
  - FEELING ABNORMAL [None]
  - FEELING HOT [None]
  - HEADACHE [None]
  - HYPOAESTHESIA [None]
  - HYPOAESTHESIA ORAL [None]
  - PAIN IN JAW [None]
  - PARAESTHESIA [None]
  - PRURITUS [None]
  - SUNBURN [None]
